FAERS Safety Report 19579575 (Version 1)
Quarter: 2021Q3

REPORT INFORMATION
  Report Type: Spontaneous
  Country: IT (occurrence: IT)
  Receive Date: 20210719
  Receipt Date: 20210719
  Transmission Date: 20211014
  Serious: Yes (Other)
  Sender: FDA-Public Use
  Company Number: NVSC2021IT152357

PATIENT
  Age: 38 Year
  Sex: Female

DRUGS (2)
  1. BISOPROLOL [Suspect]
     Active Substance: BISOPROLOL
     Indication: ENDOCARDITIS BACTERIAL
     Dosage: UNK (2.5, UNSPECIFIED UNITS)
     Route: 065
  2. VITAMINS NOS [Concomitant]
     Active Substance: VITAMINS
     Indication: RETINITIS PIGMENTOSA
     Dosage: UNK
     Route: 065

REACTIONS (4)
  - Placenta praevia [Recovered/Resolved]
  - Normal newborn [Unknown]
  - Maternal exposure during pregnancy [Unknown]
  - Off label use [Unknown]
